FAERS Safety Report 13638082 (Version 5)
Quarter: 2017Q4

REPORT INFORMATION
  Report Type: Spontaneous
  Country: AU (occurrence: AU)
  Receive Date: 20170609
  Receipt Date: 20171020
  Transmission Date: 20180320
  Serious: Yes (Hospitalization)
  Sender: FDA-Public Use
  Company Number: AU-SA-2017SA099099

PATIENT
  Sex: Female

DRUGS (1)
  1. LEMTRADA [Suspect]
     Active Substance: ALEMTUZUMAB
     Indication: MULTIPLE SCLEROSIS
     Route: 041
     Dates: start: 201606

REACTIONS (6)
  - Urine analysis abnormal [Recovering/Resolving]
  - Chromaturia [Recovering/Resolving]
  - Anti-glomerular basement membrane antibody positive [Recovered/Resolved]
  - Blood albumin increased [Recovering/Resolving]
  - Haematoma [Unknown]
  - Goodpasture^s syndrome [Recovering/Resolving]

NARRATIVE: CASE EVENT DATE: 2017
